FAERS Safety Report 6045608-5 (Version None)
Quarter: 2009Q1

REPORT INFORMATION
  Report Type: 
  Country: None (occurrence: None)
  Receive Date: 20090121
  Receipt Date: 20090109
  Transmission Date: 20090719
  Serious: Yes (Hospitalization)
  Sender: FDA-Public Use
  Company Number: FR-ROCHE-601501

PATIENT
  Sex: Female
  Weight: 79 kg

DRUGS (2)
  1. BONIVA [Suspect]
     Indication: OSTEOPOROTIC FRACTURE
     Route: 048
     Dates: start: 20080401
  2. PREVISCAN [Concomitant]
     Indication: DRUG USE FOR UNKNOWN INDICATION
     Route: 065

REACTIONS (1)
  - COLITIS ULCERATIVE [None]
